FAERS Safety Report 17182149 (Version 1)
Quarter: 2019Q4

REPORT INFORMATION
  Report Type: Spontaneous
  Country: CA (occurrence: CA)
  Receive Date: 20191220
  Receipt Date: 20191220
  Transmission Date: 20200122
  Serious: Yes (Death, Other)
  Sender: FDA-Public Use
  Company Number: CA-TEVA-2019-CA-1153961

PATIENT
  Age: 46 Year
  Sex: Female

DRUGS (2)
  1. DAUNORUBICIN HYDROCHLORIDE FOR INJECTION [Suspect]
     Active Substance: DAUNORUBICIN HYDROCHLORIDE
     Indication: ACUTE MYELOID LEUKAEMIA
     Route: 065
  2. CYTARABINE INJECTION [Suspect]
     Active Substance: CYTARABINE
     Indication: ACUTE MYELOID LEUKAEMIA
     Route: 065

REACTIONS (1)
  - Drug ineffective [Fatal]
